FAERS Safety Report 21786187 (Version 1)
Quarter: 2022Q4

REPORT INFORMATION
  Report Type: Report from Study
  Country: US (occurrence: US)
  Receive Date: 20221228
  Receipt Date: 20221228
  Transmission Date: 20230113
  Serious: Yes (Hospitalization)
  Sender: FDA-Public Use
  Company Number: US-SUN PHARMACEUTICAL INDUSTRIES LTD-2022R1-370601

PATIENT
  Age: 16 Year
  Sex: Female

DRUGS (1)
  1. ACETAMINOPHEN [Suspect]
     Active Substance: ACETAMINOPHEN
     Indication: Product used for unknown indication
     Dosage: 15  TABLETS
     Route: 048

REACTIONS (4)
  - Overdose [Unknown]
  - Drug level increased [Recovered/Resolved]
  - Transaminases increased [Recovering/Resolving]
  - International normalised ratio increased [Recovered/Resolved]
